FAERS Safety Report 8428205-3 (Version None)
Quarter: 2012Q2

REPORT INFORMATION
  Report Type: 
  Country: None (occurrence: None)
  Receive Date: 20120611
  Receipt Date: 20120604
  Transmission Date: 20120825
  Serious: Yes (Death)
  Sender: FDA-Public Use
  Company Number: US-BAXTER-2012BAX007492

PATIENT
  Sex: Male

DRUGS (1)
  1. ARALAST NP [Suspect]
     Route: 065
     Dates: end: 20090210

REACTIONS (1)
  - DEATH [None]
